FAERS Safety Report 20229052 (Version 1)
Quarter: 2021Q4

REPORT INFORMATION
  Report Type: Report from Study
  Country: GB (occurrence: GB)
  Receive Date: 20211225
  Receipt Date: 20211225
  Transmission Date: 20220303
  Serious: Yes (Other)
  Sender: FDA-Public Use
  Company Number: GB-TEVA-2021-GB-1991466

PATIENT
  Age: 7 Decade
  Sex: Female
  Weight: 37.2 kg

DRUGS (2)
  1. ITRACONAZOLE [Suspect]
     Active Substance: ITRACONAZOLE
     Indication: Bronchopulmonary aspergillosis
     Route: 048
  2. VORICONAZOLE [Suspect]
     Active Substance: VORICONAZOLE
     Indication: Bronchopulmonary aspergillosis
     Route: 048

REACTIONS (1)
  - Drug resistance [Unknown]
